FAERS Safety Report 10039272 (Version 1)
Quarter: 2014Q1

REPORT INFORMATION
  Report Type: Spontaneous
  Country: BR (occurrence: BR)
  Receive Date: 20140326
  Receipt Date: 20140326
  Transmission Date: 20141002
  Serious: Yes (Other)
  Sender: FDA-Public Use
  Company Number: BR-PFIZER INC-2014080347

PATIENT
  Sex: Female

DRUGS (1)
  1. LYRICA [Suspect]
     Indication: MIGRAINE
     Dosage: 1 TABLET OF 75MG AT NIGHT
     Route: 048
     Dates: start: 20140316

REACTIONS (2)
  - Body temperature decreased [Recovered/Resolved]
  - Hyperhidrosis [Not Recovered/Not Resolved]
